FAERS Safety Report 6678650-1 (Version None)
Quarter: 2010Q2

REPORT INFORMATION
  Report Type: 
  Country: None (occurrence: None)
  Receive Date: 20100413
  Receipt Date: 20100406
  Transmission Date: 20101027
  Serious: Yes (Other)
  Sender: FDA-Public Use
  Company Number: JP-PFIZER INC-2010044261

PATIENT
  Age: 72 Year
  Sex: Male

DRUGS (2)
  1. ATARAX [Suspect]
     Dosage: 50 MG, DAILY
     Route: 042
  2. LEPETAN [Concomitant]

REACTIONS (1)
  - RENAL IMPAIRMENT [None]
